FAERS Safety Report 4707931-3 (Version None)
Quarter: 2005Q3

REPORT INFORMATION
  Report Type: 
  Country: None (occurrence: None)
  Receive Date: 20050705
  Receipt Date: 20050705
  Transmission Date: 20060218
  Serious: Yes (Hospitalization, Other)
  Sender: FDA-Public Use
  Company Number: None

PATIENT
  Age: 15 Year
  Sex: Male
  Weight: 46.7205 kg

DRUGS (1)
  1. VANCOMYCIN;;ANTI-INFECTIVES [Suspect]
     Dates: start: 20050601, end: 20050629

REACTIONS (1)
  - NEUTROPENIA [None]
